FAERS Safety Report 16828612 (Version 1)
Quarter: 2019Q3

REPORT INFORMATION
  Report Type: Report from Study
  Country: CA (occurrence: CA)
  Receive Date: 20190919
  Receipt Date: 20190919
  Transmission Date: 20191005
  Serious: Yes (Hospitalization, Other)
  Sender: FDA-Public Use
  Company Number: CA-JNJFOC-20190734437

PATIENT
  Age: 71 Year
  Sex: Male
  Weight: 70 kg

DRUGS (1)
  1. STELARA [Suspect]
     Active Substance: USTEKINUMAB
     Indication: CROHN^S DISEASE
     Route: 058
     Dates: start: 20181211

REACTIONS (8)
  - Intestinal obstruction [Unknown]
  - Crohn^s disease [Recovered/Resolved]
  - Splenectomy [Unknown]
  - Post procedural pneumonia [Unknown]
  - Skin abrasion [Recovering/Resolving]
  - Intestinal stenosis [Unknown]
  - Musculoskeletal chest pain [Unknown]
  - Fall [Recovering/Resolving]

NARRATIVE: CASE EVENT DATE: 201907
